FAERS Safety Report 18911126 (Version 1)
Quarter: 2021Q1

REPORT INFORMATION
  Report Type: Spontaneous
  Country: SD (occurrence: SD)
  Receive Date: 20210218
  Receipt Date: 20210218
  Transmission Date: 20210420
  Serious: Yes (Other)
  Sender: FDA-Public Use
  Company Number: SD-JAZZ-2021-SD-002724

PATIENT
  Age: 6 Year
  Sex: Female

DRUGS (1)
  1. ASPARAGINASE [Suspect]
     Active Substance: ASPARAGINASE
     Indication: ACUTE LYMPHOCYTIC LEUKAEMIA
     Dosage: CCG1991 PROTOCO
     Dates: start: 20200816

REACTIONS (1)
  - Anaphylactic shock [Unknown]
